FAERS Safety Report 24710907 (Version 1)
Quarter: 2024Q4

REPORT INFORMATION
  Report Type: Spontaneous
  Country: US (occurrence: None)
  Receive Date: 20241209
  Receipt Date: 20241209
  Transmission Date: 20250115
  Serious: Yes (Other)
  Sender: UNICHEM
  Company Number: US-Unichem Pharmaceuticals (USA) Inc-UCM202412-001627

PATIENT
  Sex: Female

DRUGS (1)
  1. BACLOFEN [Suspect]
     Active Substance: BACLOFEN
     Indication: Alcohol use disorder
     Dosage: UNKNOWN

REACTIONS (2)
  - Drug-induced liver injury [Recovered/Resolved]
  - Product use in unapproved indication [Unknown]
